FAERS Safety Report 10277562 (Version 6)
Quarter: 2016Q1

REPORT INFORMATION
  Report Type: Report from Study
  Country: JP (occurrence: JP)
  Receive Date: 20140703
  Receipt Date: 20160122
  Transmission Date: 20160525
  Serious: Yes (Life-Threatening, Hospitalization, Other)
  Sender: FDA-Public Use
  Company Number: JP-ALEXION PHARMACEUTICALS INC.-A201402553

PATIENT
  Age: 62 Year
  Sex: Female
  Weight: 48 kg

DRUGS (9)
  1. SEROQUEL [Concomitant]
     Active Substance: QUETIAPINE FUMARATE
     Indication: SEDATION
     Dosage: 100 MG, TID
     Route: 048
     Dates: start: 20140410, end: 20140608
  2. SOLIRIS [Suspect]
     Active Substance: ECULIZUMAB
     Dosage: 1200 MG, Q2W
     Route: 042
     Dates: start: 20140422, end: 20140826
  3. CEFTRIAXONE. [Concomitant]
     Active Substance: CEFTRIAXONE
     Indication: INFECTION PROPHYLAXIS
     Dosage: 1 G, QD
     Route: 065
     Dates: start: 20140325, end: 20140410
  4. MEROPEN                            /01250501/ [Concomitant]
     Active Substance: MEROPENEM
     Indication: INFECTION PROPHYLAXIS
     Dosage: 500 MG, QD
     Route: 065
     Dates: start: 20140411, end: 20140417
  5. SOLIRIS [Suspect]
     Active Substance: ECULIZUMAB
     Indication: HAEMOLYTIC URAEMIC SYNDROME
     Dosage: 900 MG, QW
     Route: 042
     Dates: start: 20140325, end: 20140415
  6. SERENACE [Concomitant]
     Active Substance: HALOPERIDOL
     Indication: SEDATION
     Dosage: 5 MG, QD
     Route: 041
     Dates: start: 20140404, end: 20140408
  7. FUNGUARD [Concomitant]
     Active Substance: MICAFUNGIN SODIUM
     Indication: INFECTION PROPHYLAXIS
     Dosage: 50 MG, QD
     Route: 065
     Dates: start: 20140415, end: 20140422
  8. CONIEL [Concomitant]
     Active Substance: BENIDIPINE HYDROCHLORIDE
     Indication: HAEMOLYTIC URAEMIC SYNDROME
     Dosage: 4 MG, QD
     Route: 048
     Dates: start: 20140314, end: 20140323
  9. NICARDIPINE [Concomitant]
     Active Substance: NICARDIPINE
     Indication: HAEMOLYTIC URAEMIC SYNDROME
     Dosage: 40 MG, QD
     Route: 041
     Dates: start: 20140324, end: 20140325

REACTIONS (5)
  - Sclerema [Not Recovered/Not Resolved]
  - Cerebral infarction [Not Recovered/Not Resolved]
  - Drug ineffective [Not Recovered/Not Resolved]
  - Thrombosis [Unknown]
  - Jugular vein thrombosis [Not Recovered/Not Resolved]

NARRATIVE: CASE EVENT DATE: 201406
